FAERS Safety Report 25599811 (Version 1)
Quarter: 2025Q3

REPORT INFORMATION
  Report Type: Spontaneous
  Country: CN (occurrence: CN)
  Receive Date: 20250724
  Receipt Date: 20250724
  Transmission Date: 20251021
  Serious: Yes (Death)
  Sender: ACCORD
  Company Number: CN-HENLIUS-25CN021421

PATIENT
  Age: 46 Year
  Sex: Female
  Weight: 57.0 kg

DRUGS (13)
  1. TRASTUZUMAB [Suspect]
     Active Substance: TRASTUZUMAB
     Indication: Invasive ductal breast carcinoma
     Dosage: STRENGTH:150 MILLIGRAM, Q3W, IV DRIP
     Route: 042
     Dates: start: 20240711, end: 20240711
  2. PERTUZUMAB [Suspect]
     Active Substance: PERTUZUMAB
     Indication: Invasive ductal breast carcinoma
     Dosage: Q3W
     Dates: start: 20240711, end: 20240711
  3. PACLITAXEL [Suspect]
     Active Substance: PACLITAXEL
     Indication: Invasive ductal breast carcinoma
     Dates: start: 20240711, end: 20240711
  4. CARBOPLATIN [Suspect]
     Active Substance: CARBOPLATIN
     Indication: Invasive ductal breast carcinoma
     Dates: start: 20240711, end: 20240711
  5. PACLITAXEL [Suspect]
     Active Substance: PACLITAXEL
     Indication: Invasive ductal breast carcinoma
     Dates: start: 20240809
  6. CARBOPLATIN [Suspect]
     Active Substance: CARBOPLATIN
     Indication: Invasive ductal breast carcinoma
     Dates: start: 20240809
  7. TRASTUZUMAB [Suspect]
     Active Substance: TRASTUZUMAB
     Indication: Invasive ductal breast carcinoma
     Dosage: STRENGTH:150 MILLIGRAM, Q3W, IV DRIP
     Route: 042
     Dates: start: 20240809, end: 20241101
  8. TRASTUZUMAB [Suspect]
     Active Substance: TRASTUZUMAB
     Indication: Invasive ductal breast carcinoma
     Dosage: STRENGTH:150 MILLIGRAM, Q3W, IV DRIP
     Route: 042
     Dates: start: 20241216, end: 20250702
  9. TRASTUZUMAB [Suspect]
     Active Substance: TRASTUZUMAB
     Indication: Invasive ductal breast carcinoma
     Dosage: STRENGTH: 60 MILLIGRAM, Q3W, IV DRIP
     Route: 042
     Dates: start: 20240711, end: 20240711
  10. TRASTUZUMAB [Suspect]
     Active Substance: TRASTUZUMAB
     Indication: Invasive ductal breast carcinoma
     Dosage: STRENGTH: 60 MILLIGRAM, Q3W, IV DRIP
     Route: 042
     Dates: start: 20240809, end: 20241101
  11. TRASTUZUMAB [Suspect]
     Active Substance: TRASTUZUMAB
     Indication: Invasive ductal breast carcinoma
     Dosage: STRENGTH:60 MILLIGRAM, Q3W, IV DRIP
     Route: 042
     Dates: start: 20241216, end: 20250702
  12. PERTUZUMAB [Suspect]
     Active Substance: PERTUZUMAB
     Indication: Invasive ductal breast carcinoma
     Dosage: Q3W
     Dates: start: 20240809, end: 20241101
  13. PERTUZUMAB [Suspect]
     Active Substance: PERTUZUMAB
     Indication: Invasive ductal breast carcinoma
     Dosage: Q3W
     Dates: start: 20241216, end: 20250702

REACTIONS (1)
  - Cardio-respiratory arrest [Fatal]

NARRATIVE: CASE EVENT DATE: 20250703
